FAERS Safety Report 9900161 (Version 2)
Quarter: 2014Q2

REPORT INFORMATION
  Report Type: Spontaneous
  Country: US (occurrence: US)
  Receive Date: 20140214
  Receipt Date: 20140523
  Transmission Date: 20141212
  Serious: Yes (Death, Other)
  Sender: FDA-Public Use
  Company Number: US-GILEAD-2014-0094235

PATIENT
  Sex: Male

DRUGS (7)
  1. LETAIRIS [Suspect]
     Indication: PULMONARY ARTERIAL HYPERTENSION
     Dosage: 10 MG, UNK
     Route: 065
     Dates: start: 20130924, end: 20140203
  2. REVATIO [Concomitant]
  3. ADVAIR HFA [Concomitant]
  4. ASA [Concomitant]
  5. DIGOXIN [Concomitant]
  6. PROCARDIA                          /00340701/ [Concomitant]
  7. PROAIR                             /00139502/ [Concomitant]

REACTIONS (1)
  - Pulmonary hypertension [Fatal]
